FAERS Safety Report 18585696 (Version 1)
Quarter: 2020Q4

REPORT INFORMATION
  Report Type: Spontaneous
  Country: US (occurrence: US)
  Receive Date: 20201205
  Receipt Date: 20201205
  Transmission Date: 20210114
  Serious: Yes (Hospitalization, Other)
  Sender: FDA-Public Use
  Company Number: None

PATIENT
  Age: 42 Year
  Sex: Female

DRUGS (1)
  1. OZEMPIC [Suspect]
     Active Substance: SEMAGLUTIDE
     Indication: OBESITY
     Dosage: ?          OTHER FREQUENCY:1 TIME A WEEK;?
     Route: 058
     Dates: start: 20200220, end: 20200917

REACTIONS (3)
  - Gallbladder disorder [None]
  - Gallbladder obstruction [None]
  - Cholelithiasis [None]

NARRATIVE: CASE EVENT DATE: 20201202
